FAERS Safety Report 4719763-0 (Version None)
Quarter: 2005Q3

REPORT INFORMATION
  Report Type: 
  Country: None (occurrence: None)
  Receive Date: 20050721
  Receipt Date: 20040721
  Transmission Date: 20060218
  Serious: No
  Sender: FDA-Public Use
  Company Number: US-GLAXOSMITHKLINE-A0519220A

PATIENT
  Age: 72 Year
  Sex: Female

DRUGS (11)
  1. AVANDIA [Suspect]
     Dosage: 4MG TWICE PER DAY
     Route: 048
     Dates: start: 20040719, end: 20040719
  2. NABUMETONE [Concomitant]
  3. OMEPRAZOLE [Concomitant]
  4. ISOSORBIDE [Concomitant]
  5. ATENOLOL [Concomitant]
  6. RANITIDINE [Concomitant]
  7. CARISOPRODOL [Concomitant]
  8. ASPIRIN [Concomitant]
  9. CALTRATE [Concomitant]
  10. CENTRUM [Concomitant]
  11. POTASSIUM CHLORIDE [Concomitant]

REACTIONS (1)
  - BLOOD GLUCOSE INCREASED [None]
